FAERS Safety Report 8799636 (Version 1)
Quarter: 2012Q4

REPORT INFORMATION
  Report Type: 
  Country: US (occurrence: US)
  Receive Date: 20120919
  Receipt Date: 20120919
  Transmission Date: 20130627
  Serious: No
  Sender: FDA-Public Use
  Company Number: US-009507513-1208USA009748

PATIENT

DRUGS (4)
  1. PEG-INTRON [Suspect]
     Indication: HEPATITIS C
     Dosage: UNK
     Dates: start: 20100101
  2. PEG-INTRON [Suspect]
     Dosage: UNK
     Dates: start: 20120813
  3. REBETOL [Suspect]
     Indication: HEPATITIS C
     Dosage: UNK
     Dates: start: 20100101
  4. REBETOL [Suspect]
     Dosage: UNK
     Dates: start: 20120813

REACTIONS (3)
  - Therapy responder [Unknown]
  - Disease progression [Unknown]
  - Rash [Unknown]
